FAERS Safety Report 11927885 (Version 4)
Quarter: 2016Q1

REPORT INFORMATION
  Report Type: Spontaneous
  Country: US (occurrence: US)
  Receive Date: 20160119
  Receipt Date: 20160223
  Transmission Date: 20160526
  Serious: Yes (Other)
  Sender: FDA-Public Use
  Company Number: US-PFIZER INC-2016018192

PATIENT
  Age: 87 Year
  Sex: Female

DRUGS (2)
  1. TRAMADOL. [Concomitant]
     Active Substance: TRAMADOL
     Dosage: UNK
  2. LYRICA [Suspect]
     Active Substance: PREGABALIN
     Indication: NEUROPATHY PERIPHERAL
     Dosage: 1 DF, 2X/DAY (MORNING + ONE AT BEDTIME)

REACTIONS (5)
  - Hip fracture [Unknown]
  - Fall [Unknown]
  - Balance disorder [Unknown]
  - Neoplasm malignant [Unknown]
  - Plasma cell myeloma [Unknown]
